FAERS Safety Report 9663623 (Version 2)
Quarter: 2013Q4

REPORT INFORMATION
  Report Type: Spontaneous
  Country: US (occurrence: US)
  Receive Date: 20131101
  Receipt Date: 20131121
  Transmission Date: 20140711
  Serious: No
  Sender: FDA-Public Use
  Company Number: US-PFIZER INC-2013312091

PATIENT
  Age: 77 Year
  Sex: Male
  Weight: 68.03 kg

DRUGS (1)
  1. LYRICA [Suspect]
     Indication: NEURALGIA
     Dosage: 50 MG, 2X/DAY
     Dates: start: 2013, end: 2013

REACTIONS (2)
  - Joint swelling [Unknown]
  - Oedema peripheral [Unknown]
